FAERS Safety Report 9803939 (Version 1)
Quarter: 2014Q1

REPORT INFORMATION
  Report Type: Spontaneous
  Country: US (occurrence: None)
  Receive Date: 20140103
  Receipt Date: 20140103
  Transmission Date: 20141002
  Serious: Yes (Other)
  Sender: FDA-Public Use
  Company Number: SYM-2013-13653

PATIENT
  Age: 40 Year
  Sex: Female

DRUGS (1)
  1. XENAZINE [Suspect]
     Indication: HUNTINGTON^S DISEASE
     Dosage: 1 IN 1 D
     Route: 048
     Dates: start: 201311

REACTIONS (12)
  - Nausea [None]
  - Fall [None]
  - Rhinorrhoea [None]
  - Pyrexia [None]
  - Headache [None]
  - Balance disorder [None]
  - Head injury [None]
  - Dysarthria [None]
  - Contusion [None]
  - Movement disorder [None]
  - Drug ineffective [None]
  - Malaise [None]
